FAERS Safety Report 12475835 (Version 1)
Quarter: 2016Q2

REPORT INFORMATION
  Report Type: Spontaneous
  Country: GB (occurrence: GB)
  Receive Date: 20160617
  Receipt Date: 20160617
  Transmission Date: 20160815
  Serious: Yes (Disabling)
  Sender: FDA-Public Use
  Company Number: GB-BRISTOL-MYERS SQUIBB COMPANY-B034363

PATIENT
  Age: 25 Year
  Sex: Male

DRUGS (1)
  1. KENALOG-40 [Suspect]
     Active Substance: TRIAMCINOLONE ACETONIDE
     Indication: SEASONAL ALLERGY
     Dosage: DOSE UNIT: MILLIGRAM/MILLILITER
     Route: 030
     Dates: start: 19970609, end: 19970609

REACTIONS (3)
  - Injection site swelling [Recovered/Resolved]
  - Abscess [Recovered/Resolved]
  - Lipoma [Not Recovered/Not Resolved]

NARRATIVE: CASE EVENT DATE: 199706
